FAERS Safety Report 7090886-7 (Version None)
Quarter: 2010Q4

REPORT INFORMATION
  Report Type: 
  Country: None (occurrence: None)
  Receive Date: 20101109
  Receipt Date: 20101026
  Transmission Date: 20110411
  Serious: Yes (Hospitalization)
  Sender: FDA-Public Use
  Company Number: CH-AMGEN-QUU427252

PATIENT

DRUGS (17)
  1. ETANERCEPT [Suspect]
     Indication: RHEUMATOID ARTHRITIS
     Dosage: 50 MG, QWK
     Route: 058
     Dates: start: 20100430
  2. ETANERCEPT [Suspect]
     Dosage: 50 MG, UNK
     Route: 058
     Dates: start: 20100518, end: 20100726
  3. METHOTREXATE [Suspect]
     Indication: RHEUMATOID ARTHRITIS
     Dosage: UNK UNK, UNK
     Route: 048
     Dates: start: 20100410
  4. METHOTREXATE [Suspect]
     Dosage: 2.5 MG, UNK
     Route: 048
     Dates: start: 20100518, end: 20100726
  5. METHOTREXATE [Suspect]
     Dosage: 10-25 MG ONCE WEEKLY
     Route: 048
     Dates: start: 20100410
  6. METHOTREXATE [Suspect]
     Dosage: 2.5 MG; UNSPECIFIED FREQUENCY
     Route: 048
     Dates: start: 20100518, end: 20100726
  7. PARACETAMOL [Concomitant]
     Indication: MIGRAINE
     Dosage: 3 G, PRN
     Dates: start: 20100505
  8. PARACETAMOL [Concomitant]
     Dosage: 3 G AS NEEDED
     Dates: start: 20100505
  9. PANTOZOL                           /01263202/ [Concomitant]
     Indication: GASTROOESOPHAGEAL REFLUX DISEASE
     Dosage: 40 MG, UNK
     Dates: start: 20100421
  10. PANTOZOL                           /01263202/ [Concomitant]
     Dosage: 40 MG; UNSPECIFIED FREQUENCY
     Dates: start: 20100421
  11. HEPARIN-FRACTION, CALCIUM SALT [Concomitant]
     Dosage: 4 MG, UNK
     Route: 058
     Dates: start: 20100611, end: 20100611
  12. HEPARIN-FRACTION, CALCIUM SALT [Concomitant]
     Dosage: UNK UNK, UNK
     Route: 058
     Dates: start: 20100623, end: 20100623
  13. HEPARIN-FRACTION, CALCIUM SALT [Concomitant]
     Dosage: 4MG ONCE
     Route: 058
     Dates: start: 20100611, end: 20100611
  14. HEPARIN-FRACTION, CALCIUM SALT [Concomitant]
     Dosage: 4 MG ONCE
     Route: 058
     Dates: start: 20100623, end: 20100623
  15. HEPARIN-FRACTION, CALCIUM SALT [Concomitant]
     Dosage: 4MG ONCE
     Route: 058
     Dates: start: 20100611, end: 20100611
  16. HEPARIN-FRACTION, CALCIUM SALT [Concomitant]
     Dosage: 4 MG ONCE
     Route: 058
     Dates: start: 20100623, end: 20100623
  17. DAFALGAN [Concomitant]
     Indication: RHEUMATOID ARTHRITIS
     Dosage: UNSPECIFIED
     Dates: start: 20100301

REACTIONS (3)
  - GASTRITIS EROSIVE [None]
  - HEPATIC STEATOSIS [None]
  - SYSTEMIC SCLEROSIS [None]
